FAERS Safety Report 21450651 (Version 1)
Quarter: 2022Q4

REPORT INFORMATION
  Report Type: Report from Study
  Country: US (occurrence: US)
  Receive Date: 20221013
  Receipt Date: 20221013
  Transmission Date: 20230113
  Serious: No
  Sender: FDA-Public Use
  Company Number: US-ABBVIE-4139223

PATIENT
  Sex: Male

DRUGS (1)
  1. VENCLEXTA [Suspect]
     Active Substance: VENETOCLAX
     Indication: Acute myeloid leukaemia
     Dosage: FORM STRENGTH100 MILLIGRAM?TAKE 4 TABLETS BY MOUTH DAILY FOR CANCER TAKE 8 OUNCES OF WATER WITHIN...
     Route: 048

REACTIONS (1)
  - Off label use [Unknown]
